FAERS Safety Report 8833788 (Version 2)
Quarter: 2012Q4

REPORT INFORMATION
  Report Type: Spontaneous
  Country: US (occurrence: None)
  Receive Date: 20121010
  Receipt Date: 20121016
  Transmission Date: 20130627
  Serious: Yes (Death)
  Sender: FDA-Public Use
  Company Number: 2012033432

PATIENT
  Age: 10 Year
  Sex: Male

DRUGS (1)
  1. CORIFACT [Suspect]

REACTIONS (2)
  - Multi-organ failure [None]
  - BK virus infection [None]
